FAERS Safety Report 17099943 (Version 2)
Quarter: 2019Q4

REPORT INFORMATION
  Report Type: Spontaneous
  Country: CA (occurrence: CA)
  Receive Date: 20191202
  Receipt Date: 20191212
  Transmission Date: 20200122
  Serious: Yes (Hospitalization, Other)
  Sender: FDA-Public Use
  Company Number: CA-COVIS PHARMA B.V.-2019COV00284

PATIENT
  Age: 96 Year
  Sex: Female

DRUGS (19)
  1. FORMOTEROL FUMARATE [Suspect]
     Active Substance: FORMOTEROL FUMARATE
     Dosage: UNK, 2X/DAY
  2. GLUMETZA [Suspect]
     Active Substance: METFORMIN HYDROCHLORIDE
     Dosage: UNK, 2X/DAY
  3. TECTA (ENTERIC COATED) [Suspect]
     Active Substance: PANTOPRAZOLE MAGNESIUM
     Dosage: 40 MG, 1X/DAY
     Route: 048
  4. QVAR [Suspect]
     Active Substance: BECLOMETHASONE DIPROPIONATE
     Dosage: UNK
  5. NUCALA [Suspect]
     Active Substance: MEPOLIZUMAB
     Indication: ASTHMA
     Dosage: 100 MG, 1X/DAY
     Route: 042
  6. ZOCOR [Concomitant]
     Active Substance: SIMVASTATIN
  7. AIROMIR [Suspect]
     Active Substance: ALBUTEROL SULFATE
     Dosage: UNK
     Dates: start: 1987
  8. PILOCARPINE HYDROCHLORIDE. [Suspect]
     Active Substance: PILOCARPINE HYDROCHLORIDE
     Dosage: UNK MG, 1X/DAY
  9. XALATAN [Suspect]
     Active Substance: LATANOPROST
  10. ACLIDINIUM BROMIDE. [Suspect]
     Active Substance: ACLIDINIUM BROMIDE
  11. GLYCOPYRRONIUM BROMIDE+INDACATEROL MALEATE [Suspect]
     Active Substance: GLYCOPYRROLATE\INDACATEROL MALEATE
  12. MOGADON [Suspect]
     Active Substance: NITRAZEPAM
     Dosage: 5 MG
  13. OMNARIS [Suspect]
     Active Substance: CICLESONIDE
     Dosage: 1 DOSAGE UNITS
     Route: 045
  14. BETAXOLOL. [Suspect]
     Active Substance: BETAXOLOL
     Dosage: UNK
  15. QVAR [Suspect]
     Active Substance: BECLOMETHASONE DIPROPIONATE
     Dosage: 2 DOSAGE UNITS, 2X/DAY
  16. QVAR [Suspect]
     Active Substance: BECLOMETHASONE DIPROPIONATE
     Dosage: UNK
  17. METFORMIN (GLYCON) [Suspect]
     Active Substance: METFORMIN HYDROCHLORIDE
  18. GLYCERYL TRINITRATE [Suspect]
     Active Substance: NITROGLYCERIN
     Dosage: UNK
     Route: 042
  19. SYNTHROID [Suspect]
     Active Substance: LEVOTHYROXINE SODIUM
     Dosage: UNK

REACTIONS (30)
  - Crepitations [Recovering/Resolving]
  - Adverse drug reaction [Recovering/Resolving]
  - Fall [Recovering/Resolving]
  - Chest discomfort [Recovering/Resolving]
  - Glaucoma [Recovering/Resolving]
  - Limb injury [Recovering/Resolving]
  - Acute myocardial infarction [Recovering/Resolving]
  - Choking [Recovering/Resolving]
  - Coronary artery disease [Recovering/Resolving]
  - Pulmonary congestion [Recovering/Resolving]
  - Oedema peripheral [Recovering/Resolving]
  - Peripheral vascular disorder [Recovering/Resolving]
  - Pulmonary embolism [Recovering/Resolving]
  - Productive cough [Recovering/Resolving]
  - Pulmonary oedema [Recovering/Resolving]
  - Weight increased [Recovering/Resolving]
  - Dyspnoea [Recovering/Resolving]
  - Cough [Recovering/Resolving]
  - Cardiac failure congestive [Recovering/Resolving]
  - Wound [Recovering/Resolving]
  - Tachycardia [Recovering/Resolving]
  - Angioplasty [Recovering/Resolving]
  - Dizziness [Recovering/Resolving]
  - Asthma [Recovering/Resolving]
  - Haemorrhage [Recovering/Resolving]
  - Wheezing [Recovering/Resolving]
  - Urinary retention [Recovering/Resolving]
  - Transient ischaemic attack [Recovering/Resolving]
  - Sputum discoloured [Recovering/Resolving]
  - Therapeutic product effect incomplete [Recovering/Resolving]

NARRATIVE: CASE EVENT DATE: 201711
